FAERS Safety Report 6224447-6 (Version None)
Quarter: 2009Q2

REPORT INFORMATION
  Report Type: 
  Country: None (occurrence: None)
  Receive Date: 20090612
  Receipt Date: 20090331
  Transmission Date: 20091009
  Serious: No
  Sender: FDA-Public Use
  Company Number: US-ABBOTT-09P-163-0563704-00

PATIENT
  Sex: Female
  Weight: 97.61 kg

DRUGS (11)
  1. HUMIRA [Suspect]
     Indication: RHEUMATOID ARTHRITIS
     Route: 058
     Dates: start: 20080601
  2. TRAZODONE HCL [Concomitant]
     Indication: INSOMNIA
     Route: 048
  3. GABAPENTIN [Concomitant]
     Indication: PAIN
  4. ACETAMINOPHEN AND HYDROCODONE BITARTRATE [Concomitant]
     Indication: PAIN
     Dosage: 5/500 MG UP TO THREE TIMES A DAY AS NEEDED
     Route: 048
  5. PROPON-APAP [Concomitant]
     Indication: PAIN
     Dosage: 2 - 100/650 MG TABS DAILY
  6. FOLIC ACID [Concomitant]
     Indication: VITAMIN SUPPLEMENTATION
     Route: 048
  7. LEVOTHYROXINE [Concomitant]
     Indication: HYPOTHYROIDISM
     Route: 048
  8. SIMVASTATIN [Concomitant]
     Indication: BLOOD CHOLESTEROL INCREASED
     Route: 048
  9. HYDROXCHLOR [Concomitant]
     Indication: PAIN
  10. SALSALATE [Concomitant]
     Indication: PAIN
     Route: 048
  11. METHOTREXATE [Concomitant]
     Indication: RHEUMATOID ARTHRITIS
     Route: 050

REACTIONS (8)
  - BRONCHITIS [None]
  - DYSPNOEA [None]
  - FUNGAL INFECTION [None]
  - GAIT DISTURBANCE [None]
  - ILL-DEFINED DISORDER [None]
  - PAIN [None]
  - RESPIRATORY TRACT CONGESTION [None]
  - TRISMUS [None]
